FAERS Safety Report 8215614-0 (Version None)
Quarter: 2012Q1

REPORT INFORMATION
  Report Type: 
  Country: None (occurrence: None)
  Receive Date: 20120316
  Receipt Date: 20120312
  Transmission Date: 20120608
  Serious: Yes (Other)
  Sender: FDA-Public Use
  Company Number: ZA-ABBOTT-11P-143-0850068-00

PATIENT
  Sex: Male
  Weight: 85 kg

DRUGS (3)
  1. EYE DROPS [Concomitant]
     Indication: GLAUCOMA
     Route: 031
  2. HUMIRA [Suspect]
     Indication: ANKYLOSING SPONDYLITIS
     Route: 058
     Dates: start: 20080801, end: 20110804
  3. ATACAND [Concomitant]
     Indication: HYPERTENSION

REACTIONS (9)
  - BLINDNESS [None]
  - OPHTHALMOPLEGIA [None]
  - HEADACHE [None]
  - CRANIAL NERVE PARALYSIS [None]
  - IIIRD NERVE PARALYSIS [None]
  - TEMPORAL ARTERITIS [None]
  - OPTIC ATROPHY [None]
  - C-REACTIVE PROTEIN INCREASED [None]
  - IVTH NERVE PARALYSIS [None]
